FAERS Safety Report 8775062 (Version 3)
Quarter: 2012Q4

REPORT INFORMATION
  Report Type: 
  Country: IT (occurrence: IT)
  Receive Date: 20120910
  Receipt Date: 20121101
  Transmission Date: 20130627
  Serious: Yes (Hospitalization)
  Sender: FDA-Public Use
  Company Number: IT-CELGENEUS-083-21880-12083191

PATIENT
  Age: 75 Year
  Sex: Female

DRUGS (10)
  1. REVLIMID [Suspect]
     Indication: WALDENSTROM^S MACROGLOBULINEMIA
     Dosage: 10 Milligram
     Route: 048
     Dates: start: 20120518
  2. FLUXUM [Concomitant]
     Indication: THROMBOSIS PROPHYLAXIS
     Route: 065
  3. CARDIOASPIRINE [Concomitant]
     Indication: THROMBOSIS PROPHYLAXIS
     Route: 065
  4. DEXAMETHASONE [Concomitant]
     Indication: WALDENSTROM^S MACROGLOBULINEMIA
     Route: 048
  5. CYCLOPHOSPHAMIDE [Concomitant]
     Indication: DRUG USE FOR UNKNOWN INDICATION
     Dosage: 3 gr/m2
     Route: 065
  6. G-CSF [Concomitant]
     Indication: DRUG USE FOR UNKNOWN INDICATION
     Dosage: 10g/kg
     Route: 065
  7. G-CSF [Concomitant]
     Dosage: 10micro/kg/d
     Route: 065
  8. G-CSF [Concomitant]
     Dosage: 15g/kg/d
     Route: 065
  9. MELPHALAN [Concomitant]
     Indication: DRUG USE FOR UNKNOWN INDICATION
     Route: 065
  10. MELPHALAN [Concomitant]
     Route: 065

REACTIONS (2)
  - Hyperviscosity syndrome [Not Recovered/Not Resolved]
  - Ischaemic stroke [Not Recovered/Not Resolved]
